FAERS Safety Report 4288450-8 (Version None)
Quarter: 2004Q1

REPORT INFORMATION
  Report Type: 
  Country: None (occurrence: None)
  Receive Date: 20040205
  Receipt Date: 20040124
  Transmission Date: 20041129
  Serious: Yes (Other)
  Sender: FDA-Public Use
  Company Number: 2004001121

PATIENT
  Age: 45 Year
  Sex: Female

DRUGS (3)
  1. LIPITOR [Suspect]
     Indication: HYPERCHOLESTEROLAEMIA
     Dosage: 20 MG (DAILY), ORAL
     Route: 048
     Dates: start: 20031117, end: 20031124
  2. PAROXETINE HCL [Concomitant]
  3. LORAZEPAM [Concomitant]

REACTIONS (1)
  - ANAPHYLACTIC REACTION [None]
